FAERS Safety Report 11543554 (Version 1)
Quarter: 2015Q3

REPORT INFORMATION
  Report Type: Spontaneous
  Country: JP (occurrence: JP)
  Receive Date: 20150923
  Receipt Date: 20150923
  Transmission Date: 20151125
  Serious: Yes (Other)
  Sender: FDA-Public Use
  Company Number: JP-SEATTLE GENETICS-2015SGN01490

PATIENT

DRUGS (1)
  1. ADCETRIS [Suspect]
     Active Substance: BRENTUXIMAB VEDOTIN
     Indication: ANAPLASTIC LARGE-CELL LYMPHOMA
     Dosage: UNK
     Route: 041
     Dates: start: 20150608

REACTIONS (6)
  - Anaemia [Not Recovered/Not Resolved]
  - Blood bilirubin increased [Unknown]
  - Platelet count decreased [Not Recovered/Not Resolved]
  - Haptoglobin decreased [Unknown]
  - Myelodysplastic syndrome [Not Recovered/Not Resolved]
  - Blood lactate dehydrogenase increased [Unknown]

NARRATIVE: CASE EVENT DATE: 201508
